FAERS Safety Report 6826839-0 (Version None)
Quarter: 2010Q3

REPORT INFORMATION
  Report Type: 
  Country: None (occurrence: None)
  Receive Date: 20100709
  Receipt Date: 20100304
  Transmission Date: 20110219
  Serious: Yes (Other)
  Sender: FDA-Public Use
  Company Number: JP-SANOFI-AVENTIS-2010SA012759

PATIENT
  Age: 76 Year
  Sex: Male
  Weight: 53.1 kg

DRUGS (7)
  1. PLAVIX [Suspect]
     Indication: ANGINA UNSTABLE
     Route: 048
     Dates: start: 20080728, end: 20080728
  2. PLAVIX [Suspect]
     Route: 048
     Dates: start: 20080729, end: 20080804
  3. ASPIRIN [Concomitant]
     Indication: ANGINA UNSTABLE
     Route: 048
     Dates: start: 20080727
  4. LIPITOR [Concomitant]
     Route: 048
     Dates: start: 20080727, end: 20080804
  5. SIGMART [Concomitant]
     Indication: ANGINA UNSTABLE
     Dosage: 5MG, 3 TIMES A DAY
     Route: 048
     Dates: start: 20080727, end: 20080804
  6. VALSARTAN [Concomitant]
     Route: 048
     Dates: start: 20080730, end: 20080804
  7. HEPARIN [Concomitant]
     Dates: start: 20080727, end: 20080727

REACTIONS (2)
  - GASTRIC HAEMORRHAGE [None]
  - LYMPHOMA [None]
